FAERS Safety Report 21714601 (Version 1)
Quarter: 2022Q4

REPORT INFORMATION
  Report Type: Spontaneous
  Country: US (occurrence: US)
  Receive Date: 20221212
  Receipt Date: 20221212
  Transmission Date: 20230112
  Serious: Yes (Other)
  Sender: FDA-Public Use
  Company Number: US-ORGANON-O2212USA000282

PATIENT
  Sex: Female

DRUGS (2)
  1. SINEMET [Suspect]
     Active Substance: CARBIDOPA\LEVODOPA
     Dosage: TOOK 10 (UNITS NOT REPORTED) OF THE CARBIDOPA (+) LEVODOPA (SINEMET) PER DAY
     Route: 048
  2. ENTACAPONE [Concomitant]
     Active Substance: ENTACAPONE
     Dosage: UNK

REACTIONS (2)
  - Hallucination [Unknown]
  - Fall [Unknown]
